FAERS Safety Report 15479414 (Version 1)
Quarter: 2018Q4

REPORT INFORMATION
  Report Type: Spontaneous
  Country: GB (occurrence: GB)
  Receive Date: 20181009
  Receipt Date: 20181009
  Transmission Date: 20190205
  Serious: Yes (Life-Threatening, Hospitalization)
  Sender: FDA-Public Use
  Company Number: GB-MYLANLABS-2018M1073637

PATIENT
  Age: 63 Year
  Sex: Female
  Weight: 50.8 kg

DRUGS (3)
  1. CLARITHROMYCIN. [Suspect]
     Active Substance: CLARITHROMYCIN
     Indication: SEPSIS
     Dosage: 250 ML, UNK
     Route: 048
     Dates: start: 20160130, end: 20160131
  2. TRAMADOL. [Suspect]
     Active Substance: TRAMADOL
     Indication: JOINT DISLOCATION
     Dosage: 100 ML, UNK
     Route: 048
     Dates: start: 20110501, end: 20110501
  3. FLUCLOXACILLIN MAGNESIUM [Concomitant]
     Active Substance: FLUCLOXACILLIN MAGNESIUM OCTAHYDRATE
     Indication: PRODUCT USED FOR UNKNOWN INDICATION
     Dosage: UNK

REACTIONS (3)
  - Malaise [Recovered/Resolved with Sequelae]
  - Circulatory collapse [Recovered/Resolved with Sequelae]
  - Seizure [Recovered/Resolved with Sequelae]
